FAERS Safety Report 4393391-1 (Version None)
Quarter: 2004Q3

REPORT INFORMATION
  Report Type: 
  Country: None (occurrence: None)
  Receive Date: 20040701
  Receipt Date: 20040616
  Transmission Date: 20050211
  Serious: Yes (Death, Other)
  Sender: FDA-Public Use
  Company Number: JP_030400712

PATIENT
  Age: 52 Year
  Sex: Female
  Weight: 43 kg

DRUGS (5)
  1. GEMCITABINE HYDROCHLORIDE-IV (GEMCITABINE) [Suspect]
     Indication: NON-SMALL CELL LUNG CANCER
     Dosage: 1000 MG/M2/OTHER
     Dates: start: 20020816, end: 20020823
  2. CISPLATIN [Concomitant]
  3. AZASETRON HYDROCHLORIDE [Concomitant]
  4. DEXAMETHASONE SODIUM PHOSPHATE [Concomitant]
  5. MORPHINE SULFATE [Concomitant]

REACTIONS (16)
  - ANOREXIA [None]
  - DISEASE PROGRESSION [None]
  - HAEMOGLOBIN DECREASED [None]
  - HYPERPLASIA [None]
  - LUNG CONSOLIDATION [None]
  - LUNG DISORDER [None]
  - LUNG INFILTRATION [None]
  - LYMPHADENOPATHY [None]
  - NAUSEA [None]
  - NEUTROPHIL COUNT DECREASED [None]
  - PLATELET COUNT DECREASED [None]
  - PULMONARY TOXICITY [None]
  - RASH [None]
  - RED BLOOD CELL COUNT DECREASED [None]
  - WHITE BLOOD CELL COUNT DECREASED [None]
  - WHITE BLOOD CELL COUNT INCREASED [None]
